FAERS Safety Report 6145186-6 (Version None)
Quarter: 2009Q2

REPORT INFORMATION
  Report Type: 
  Country: None (occurrence: None)
  Receive Date: 20090406
  Receipt Date: 20090326
  Transmission Date: 20091009
  Serious: No
  Sender: FDA-Public Use
  Company Number: US-JNJFOC-20090307203

PATIENT
  Sex: Female
  Weight: 67.13 kg

DRUGS (17)
  1. FENTANYL TRANSDERMAL SYSTEM [Suspect]
     Indication: SPINAL CORD INJURY
     Route: 062
  2. FENTANYL TRANSDERMAL SYSTEM [Suspect]
     Indication: BACK PAIN
     Dosage: TWO 100 UG/HR PATCH
     Route: 062
  3. SIMVASTATIN [Suspect]
     Indication: BLOOD CHOLESTEROL INCREASED
     Route: 048
  4. ASPIRIN [Concomitant]
     Indication: CARDIAC DISORDER
     Route: 048
  5. POTASSIUM CHLORIDE [Concomitant]
     Indication: DRUG THERAPY
     Route: 048
  6. HYDROCHLOROTHIAZIDE [Concomitant]
     Indication: HYPERTENSION
     Route: 048
  7. LISINOPRIL [Concomitant]
     Indication: HYPERTENSION
     Route: 048
  8. OMEPRAZOLE [Concomitant]
     Indication: GASTRIC DISORDER
     Dosage: TWO 40 MG TABLETS
     Route: 048
  9. BACLOFEN [Concomitant]
     Indication: MUSCLE SPASMS
     Route: 048
  10. ALPRAZOLAM [Concomitant]
     Indication: ANXIETY
     Route: 048
  11. ATENOLOL [Concomitant]
     Indication: HYPERTENSION
     Route: 048
  12. OXYCODONE HCL [Concomitant]
     Indication: PAIN
     Dosage: 25/325 MG
     Route: 048
  13. ZETIA [Concomitant]
     Indication: BLOOD CHOLESTEROL INCREASED
     Dosage: TWO 10 MG TABLETS
     Route: 048
  14. DOCUSATE [Concomitant]
     Indication: GASTROINTESTINAL DISORDER
     Route: 048
  15. SENNAGEN [Concomitant]
     Indication: GASTROINTESTINAL DISORDER
     Route: 048
  16. VITAMIN E [Concomitant]
     Indication: VITAMIN SUPPLEMENTATION
     Route: 048
  17. FIORICET [Concomitant]
     Indication: HEADACHE
     Route: 048

REACTIONS (8)
  - DRUG DOSE OMISSION [None]
  - DRUG EFFECT INCREASED [None]
  - FEELING ABNORMAL [None]
  - GAIT DISTURBANCE [None]
  - INAPPROPRIATE SCHEDULE OF DRUG ADMINISTRATION [None]
  - MUSCULAR WEAKNESS [None]
  - PRODUCT QUALITY ISSUE [None]
  - THERAPEUTIC RESPONSE DECREASED [None]
